FAERS Safety Report 6838988-1 (Version None)
Quarter: 2010Q3

REPORT INFORMATION
  Report Type: 
  Country: None (occurrence: None)
  Receive Date: 20100713
  Receipt Date: 20071020
  Transmission Date: 20110219
  Serious: No
  Sender: FDA-Public Use
  Company Number: US-PFIZER INC-2007047515

PATIENT
  Sex: Female
  Weight: 34 kg

DRUGS (16)
  1. CHANTIX [Suspect]
     Indication: SMOKING CESSATION THERAPY
     Dates: start: 20070801
  2. TRAZODONE HYDROCHLORIDE [Concomitant]
  3. BUSPAR [Concomitant]
  4. LEXAPRO [Concomitant]
  5. FLEXERIL [Concomitant]
  6. MONTELUKAST SODIUM [Concomitant]
  7. VISTARIL [Concomitant]
  8. ATIVAN [Concomitant]
  9. FIORICET [Concomitant]
     Indication: MIGRAINE
  10. BOOST [Concomitant]
  11. VITAMINS [Concomitant]
  12. SERETIDE MITE [Concomitant]
  13. BUDESONIDE [Concomitant]
  14. MONTELUKAST SODIUM [Concomitant]
     Indication: CHRONIC OBSTRUCTIVE PULMONARY DISEASE
  15. MONTELUKAST SODIUM [Concomitant]
     Indication: ASTHMA
  16. OXYGEN [Concomitant]

REACTIONS (4)
  - DYSGEUSIA [None]
  - MALAISE [None]
  - NAUSEA [None]
  - VOMITING [None]
